FAERS Safety Report 18472969 (Version 1)
Quarter: 2020Q4

REPORT INFORMATION
  Report Type: Spontaneous
  Country: US (occurrence: US)
  Receive Date: 20201106
  Receipt Date: 20201106
  Transmission Date: 20210114
  Serious: Yes (Other)
  Sender: FDA-Public Use
  Company Number: US-STRIDES ARCOLAB LIMITED-2020SP013448

PATIENT
  Age: 43 Year
  Sex: Male

DRUGS (11)
  1. PRAZIQUANTEL. [Suspect]
     Active Substance: PRAZIQUANTEL
     Indication: NEUROCYSTICERCOSIS
     Dosage: UNK
     Route: 065
  2. DEXAMETHASONE. [Concomitant]
     Active Substance: DEXAMETHASONE
     Dosage: UNK, TAPER
     Route: 065
  3. PREDNISOLONE. [Suspect]
     Active Substance: PREDNISOLONE
     Dosage: HIGH-DOSE
     Route: 065
  4. PREDNISOLONE. [Suspect]
     Active Substance: PREDNISOLONE
     Dosage: TAPERED DOSE
     Route: 065
  5. METHOTREXATE. [Suspect]
     Active Substance: METHOTREXATE
     Dosage: TAPERED DOSE
     Route: 065
  6. PREDNISOLONE. [Suspect]
     Active Substance: PREDNISOLONE
     Indication: NEUROCYSTICERCOSIS
     Dosage: 50 MILLIGRAM PER DAY
     Route: 065
  7. PRAZIQUANTEL. [Suspect]
     Active Substance: PRAZIQUANTEL
     Dosage: UNK
     Route: 065
  8. METHOTREXATE. [Suspect]
     Active Substance: METHOTREXATE
     Indication: NEUROCYSTICERCOSIS
     Dosage: AT A MAXIMUM DOSE OF 20MG EVERY WEEK
     Route: 065
  9. ALBENDAZOLE. [Suspect]
     Active Substance: ALBENDAZOLE
     Indication: NEUROCYSTICERCOSIS
     Dosage: UNK
     Route: 065
  10. ALBENDAZOLE. [Suspect]
     Active Substance: ALBENDAZOLE
     Dosage: UNK
     Route: 065
  11. DEXAMETHASONE. [Concomitant]
     Active Substance: DEXAMETHASONE
     Indication: NEUROCYSTICERCOSIS
     Dosage: 6 MILLIGRAM PER DAY
     Route: 065

REACTIONS (2)
  - Treatment failure [Unknown]
  - Osteonecrosis [Unknown]
